FAERS Safety Report 21390539 (Version 2)
Quarter: 2022Q3

REPORT INFORMATION
  Report Type: Spontaneous
  Country: JP (occurrence: JP)
  Receive Date: 20220929
  Receipt Date: 20220930
  Transmission Date: 20221027
  Serious: No
  Sender: FDA-Public Use
  Company Number: JP-ASTELLAS-2022JP013838

PATIENT
  Age: 8 Decade
  Sex: Female

DRUGS (1)
  1. PADCEV [Suspect]
     Active Substance: ENFORTUMAB VEDOTIN-EJFV
     Indication: Product used for unknown indication
     Dosage: 0.75 MG/KG, ONCE WEEKLY FOR 3 CONSECUTIVE WEEKS AND WITHDRAWAL FOR THE 4TH WEEK
     Route: 065
     Dates: start: 20220826

REACTIONS (2)
  - Malaise [Not Recovered/Not Resolved]
  - Decreased appetite [Not Recovered/Not Resolved]

NARRATIVE: CASE EVENT DATE: 20220909
